FAERS Safety Report 11856734 (Version 1)
Quarter: 2015Q4

REPORT INFORMATION
  Report Type: Spontaneous
  Country: US (occurrence: US)
  Receive Date: 20151221
  Receipt Date: 20151221
  Transmission Date: 20160305
  Serious: Yes (Hospitalization, Other)
  Sender: FDA-Public Use
  Company Number: US-DSJP-DSU-2015-128661

PATIENT

DRUGS (6)
  1. BENICAR HCT [Suspect]
     Active Substance: HYDROCHLOROTHIAZIDE\OLMESARTAN MEDOXOMIL
     Dosage: 20/12.5 MG, QD
     Route: 048
     Dates: start: 2004, end: 2007
  2. COLCHICINE. [Concomitant]
     Active Substance: COLCHICINE
     Indication: PRODUCT USED FOR UNKNOWN INDICATION
     Dosage: UNK
     Dates: start: 2004, end: 2010
  3. BENICAR [Suspect]
     Active Substance: OLMESARTAN MEDOXOMIL
     Indication: HYPERTENSION
     Dosage: 40 MG, QD
     Dates: start: 2004, end: 2007
  4. CHOLESTYRAMINE. [Concomitant]
     Active Substance: CHOLESTYRAMINE
     Indication: PRODUCT USED FOR UNKNOWN INDICATION
     Dosage: 4 MG, UNK
  5. AMLODIPINE [Concomitant]
     Active Substance: AMLODIPINE BESYLATE
     Indication: PRODUCT USED FOR UNKNOWN INDICATION
     Dosage: 10 MG, UNK
     Dates: start: 2003, end: 2006
  6. BENICAR HCT [Suspect]
     Active Substance: HYDROCHLOROTHIAZIDE\OLMESARTAN MEDOXOMIL
     Indication: HYPERTENSION
     Dosage: 40/12.5 MG, BID
     Dates: start: 2004, end: 2007

REACTIONS (16)
  - Gastritis [Unknown]
  - Drug administration error [Recovered/Resolved]
  - Acute kidney injury [Unknown]
  - Diverticulum [Unknown]
  - Haemorrhoids [Unknown]
  - Hepatic steatosis [Unknown]
  - Respiratory alkalosis [Unknown]
  - Anaemia [Unknown]
  - Syncope [Recovered/Resolved]
  - Cholelithiasis [Unknown]
  - Large intestine polyp [Unknown]
  - Malabsorption [Unknown]
  - Constipation [Not Recovered/Not Resolved]
  - Pancreatitis [Unknown]
  - Atrial fibrillation [Recovered/Resolved]
  - Abdominal lymphadenopathy [Unknown]

NARRATIVE: CASE EVENT DATE: 200406
